FAERS Safety Report 22614799 (Version 2)
Quarter: 2023Q2

REPORT INFORMATION
  Report Type: Spontaneous
  Country: GB (occurrence: GB)
  Receive Date: 20230619
  Receipt Date: 20230626
  Transmission Date: 20230722
  Serious: Yes (Hospitalization, Other)
  Sender: FDA-Public Use
  Company Number: GB-PHARMVIT-4556-04-ER23-RN638

PATIENT
  Age: 48 Year
  Sex: Female

DRUGS (4)
  1. ACETAMINOPHEN [Suspect]
     Active Substance: ACETAMINOPHEN
     Indication: Product used for unknown indication
     Dosage: 26 G OF PARACETAMOL IN 240 H
     Route: 050
  2. FOLATE SODIUM [Concomitant]
     Active Substance: FOLATE SODIUM
  3. BETAINE [Concomitant]
     Active Substance: BETAINE
     Dosage: ORAL BETAINE WAS WITHHELD ON ADMISSION AS THE PATIENT WAS NAUSEATED AND VOMITED INTERMITTENTLY AND H
  4. CYANOCOBALAMIN [Concomitant]
     Active Substance: CYANOCOBALAMIN

REACTIONS (11)
  - Drug-disease interaction [Recovered/Resolved]
  - Toxicity to various agents [Recovered/Resolved]
  - Acute hepatic failure [Recovered/Resolved]
  - Hypoglycaemia [Recovered/Resolved]
  - Hepatic encephalopathy [Recovered/Resolved]
  - Asterixis [Recovered/Resolved]
  - Jaundice [Recovered/Resolved]
  - Non-alcoholic steatohepatitis [Recovered/Resolved]
  - Hepatic steatosis [Recovered/Resolved]
  - Cholestasis [Recovered/Resolved]
  - Hepatic fibrosis [Recovered/Resolved]
